FAERS Safety Report 8800638 (Version 2)
Quarter: 2012Q4

REPORT INFORMATION
  Report Type: 
  Country: US (occurrence: US)
  Receive Date: 20120921
  Receipt Date: 20121023
  Transmission Date: 20130627
  Serious: No
  Sender: FDA-Public Use
  Company Number: US-B.I. PHARMACEUTICALS,INC./RIDGEFIELD-2012-BP-22823BP

PATIENT
  Age: 81 Year
  Sex: Male
  Weight: 92 kg

DRUGS (11)
  1. SPIRIVA [Suspect]
     Indication: CHRONIC OBSTRUCTIVE PULMONARY DISEASE
     Dosage: 18 mcg
     Route: 055
     Dates: start: 2000
  2. SPIRIVA [Suspect]
     Route: 048
     Dates: start: 20120914, end: 20120914
  3. AVODART [Concomitant]
     Indication: PROSTATOMEGALY
     Dosage: 0.5 mg
     Route: 048
     Dates: start: 2007
  4. FLONASE [Concomitant]
     Indication: HYPERSENSITIVITY
     Route: 045
     Dates: start: 2009
  5. ACETOMINOPHEN [Concomitant]
     Indication: ARTHRALGIA
     Route: 048
     Dates: start: 2007
  6. COLACE [Concomitant]
     Indication: CONSTIPATION
     Route: 048
     Dates: start: 2007
  7. ALBUTEROL [Concomitant]
     Indication: CHRONIC OBSTRUCTIVE PULMONARY DISEASE
     Route: 055
     Dates: start: 2000
  8. AMIODORONE [Concomitant]
     Indication: CARDIAC DISORDER
     Dosage: 200 mg
     Route: 048
     Dates: start: 2007
  9. COREG [Concomitant]
     Indication: CARDIAC DISORDER
     Dosage: 18.75 mg
     Route: 048
     Dates: start: 2007
  10. SENNA [Concomitant]
     Indication: FAECES HARD
     Route: 048
     Dates: start: 2007
  11. FUROSEMIDE [Concomitant]
     Indication: FLUID RETENTION
     Dosage: 60 mg
     Route: 048
     Dates: start: 2009

REACTIONS (1)
  - Incorrect route of drug administration [Recovered/Resolved]
